FAERS Safety Report 4320190-9 (Version None)
Quarter: 2004Q1

REPORT INFORMATION
  Report Type: 
  Country: None (occurrence: None)
  Receive Date: 20040317
  Receipt Date: 20040304
  Transmission Date: 20041129
  Serious: Yes (Other)
  Sender: FDA-Public Use
  Company Number: US-JNJFOC-20040301627

PATIENT
  Age: 62 Year
  Sex: Female
  Weight: 43.0917 kg

DRUGS (6)
  1. REMICADE [Suspect]
     Indication: RHEUMATOID ARTHRITIS
     Dosage: INTRAVENOUS
     Route: 042
     Dates: start: 20030601
  2. METHOTREXATE [Concomitant]
  3. SULFATE (FERROUS SULFATE) [Concomitant]
  4. FOLIC ACID [Concomitant]
  5. DARVOCET (PROPACET) [Concomitant]
  6. DOXEIN (DOXEPIN) [Concomitant]

REACTIONS (1)
  - LUPUS-LIKE SYNDROME [None]
